FAERS Safety Report 6927898-7 (Version None)
Quarter: 2010Q3

REPORT INFORMATION
  Report Type: 
  Country: None (occurrence: None)
  Receive Date: 20100816
  Receipt Date: 20100816
  Transmission Date: 20110219
  Serious: No
  Sender: FDA-Public Use
  Company Number: None

PATIENT
  Age: 15 Year
  Sex: Male
  Weight: 65.7716 kg

DRUGS (1)
  1. LAMICTAL [Suspect]
     Indication: BIPOLAR DISORDER
     Dosage: ONE 200MG PILL EACH DAY PO
     Route: 048
     Dates: start: 20070101, end: 20100813

REACTIONS (2)
  - ANGER [None]
  - MENINGITIS ASEPTIC [None]
